FAERS Safety Report 19979158 (Version 1)
Quarter: 2021Q4

REPORT INFORMATION
  Report Type: Spontaneous
  Country: US (occurrence: US)
  Receive Date: 20211021
  Receipt Date: 20211021
  Transmission Date: 20220303
  Serious: Yes (Other)
  Sender: FDA-Public Use
  Company Number: None

PATIENT
  Age: 74 Year
  Sex: Female
  Weight: 67.5 kg

DRUGS (13)
  1. ESTRADIOL [Suspect]
     Active Substance: ESTRADIOL
     Indication: Dry skin
     Dosage: ?          OTHER FREQUENCY:2 TIMES A WEEK.;
     Route: 067
     Dates: start: 20210909
  2. SIMVASTATIN [Concomitant]
     Active Substance: SIMVASTATIN
  3. FAMOTODINE [Concomitant]
  4. BONIVA [Concomitant]
     Active Substance: IBANDRONATE SODIUM
  5. MULTI [Concomitant]
  6. C [Concomitant]
  7. CINNAMON [Concomitant]
     Active Substance: CINNAMON
  8. ZINC [Concomitant]
     Active Substance: ZINC
  9. VITAMIN D NOS [Concomitant]
     Active Substance: VITAMIN D NOS
  10. CALCIUM [Concomitant]
     Active Substance: CALCIUM
  11. OMEGA-3 FATTY ACIDS [Concomitant]
     Active Substance: OMEGA-3 FATTY ACIDS
  12. GLUCOSAMINE [Concomitant]
     Active Substance: GLUCOSAMINE
  13. PROBIOTICS NOS [Concomitant]
     Active Substance: PROBIOTICS NOS

REACTIONS (2)
  - Pruritus [None]
  - Nonspecific reaction [None]

NARRATIVE: CASE EVENT DATE: 20210922
